FAERS Safety Report 19736882 (Version 1)
Quarter: 2021Q3

REPORT INFORMATION
  Report Type: Spontaneous
  Country: US (occurrence: US)
  Receive Date: 20210824
  Receipt Date: 20210824
  Transmission Date: 20211014
  Serious: No
  Sender: FDA-Public Use
  Company Number: US-CIPLA LTD.-2021US05232

PATIENT

DRUGS (3)
  1. DICLOFENAC [Suspect]
     Active Substance: DICLOFENAC
     Dosage: MORE THAN 32 G PER DAY, SOMETIMES 6 TIMES A DAY
     Route: 065
     Dates: start: 2021
  2. DICLOFENAC [Suspect]
     Active Substance: DICLOFENAC
     Indication: ARTHRALGIA
     Dosage: MORE THAN 32 G PER DAY, QID, SECOND TUBE (FOUR TIMES A DAY)
     Route: 065
     Dates: start: 2021
  3. DICLOFENAC [Suspect]
     Active Substance: DICLOFENAC
     Indication: BACK PAIN
     Dosage: UNK, FIRST TUBE
     Route: 065
     Dates: start: 202106

REACTIONS (5)
  - Product packaging issue [Unknown]
  - Off label use [Unknown]
  - Product use complaint [Unknown]
  - Drug ineffective for unapproved indication [Unknown]
  - Intentional product use issue [Unknown]

NARRATIVE: CASE EVENT DATE: 2021
